FAERS Safety Report 8930550 (Version 2)
Quarter: 2012Q4

REPORT INFORMATION
  Report Type: 
  Country: BR (occurrence: BR)
  Receive Date: 20121128
  Receipt Date: 20121203
  Transmission Date: 20130627
  Serious: Yes (Hospitalization)
  Sender: FDA-Public Use
  Company Number: PHHO2012BR016847

PATIENT
  Age: 39 Year
  Sex: Male
  Weight: 76 kg

DRUGS (6)
  1. CERTICAN [Suspect]
     Indication: RENAL TRANSPLANT
     Dosage: 1.5 mg, BID
     Route: 048
     Dates: start: 20120718, end: 20121119
  2. THYMOGLOBULIN [Concomitant]
     Indication: RENAL TRANSPLANT
     Dosage: 175 mg, QD
     Route: 042
     Dates: start: 20120718
  3. PREDNISONE [Concomitant]
     Indication: RENAL TRANSPLANT
     Dosage: UNK
  4. ENALAPRIL MALEATE [Concomitant]
     Indication: PROTEINURIA
     Dosage: 10 mg, BID
     Route: 048
     Dates: start: 20120918, end: 20121001
  5. ENALAPRIL MALEATE [Concomitant]
     Dosage: 20 mg, BID
     Route: 048
     Dates: start: 20121002
  6. MYCOPHENOLATE MOFETIL [Concomitant]
     Indication: RENAL TRANSPLANT
     Dosage: 360 mg, BID
     Route: 048
     Dates: start: 20121127

REACTIONS (1)
  - IgA nephropathy [Recovered/Resolved]
